FAERS Safety Report 6689295-1 (Version None)
Quarter: 2010Q2

REPORT INFORMATION
  Report Type: 
  Country: None (occurrence: None)
  Receive Date: 20100420
  Receipt Date: 20100407
  Transmission Date: 20101027
  Serious: Yes (Other)
  Sender: FDA-Public Use
  Company Number: CH-ELI_LILLY_AND_COMPANY-CH201004002459

PATIENT
  Age: 76 Year
  Sex: Female

DRUGS (9)
  1. ZYPREXA [Suspect]
     Dosage: 2.5 MG, DAILY (1/D)
     Route: 048
     Dates: start: 20100209, end: 20100222
  2. ZYPREXA [Suspect]
     Dosage: 5 MG, DAILY (1/D)
     Route: 048
     Dates: start: 20100223
  3. DEPAKENE [Concomitant]
     Dosage: 450 MG, UNK
     Route: 048
  4. LEVOTHYROXINE SODIUM [Concomitant]
     Dosage: 25 UG, DAILY (1/D)
     Route: 048
  5. METOPROLOL SUCCINATE [Concomitant]
     Dosage: 50 MG, DAILY (1/D)
     Route: 048
  6. TRAZODONE HCL [Concomitant]
     Dosage: UNK , DAILY (1/D)
     Route: 048
     Dates: end: 20100101
  7. TRAZODONE HCL [Concomitant]
     Dosage: 25 MG, DAILY (1/D)
     Route: 048
     Dates: start: 20100101
  8. CYMBALTA [Concomitant]
     Dosage: UNK , DAILY (1/D)
     Route: 048
     Dates: end: 20100101
  9. CYMBALTA [Concomitant]
     Dosage: 30 MG, DAILY (1/D)
     Route: 048
     Dates: start: 20100101, end: 20100204

REACTIONS (5)
  - DERMATITIS EXFOLIATIVE [None]
  - FLUID RETENTION [None]
  - HYPERSENSITIVITY [None]
  - URINARY TRACT INFECTION [None]
  - WEIGHT INCREASED [None]
